FAERS Safety Report 5513805-0 (Version None)
Quarter: 2007Q4

REPORT INFORMATION
  Report Type: 
  Country: None (occurrence: None)
  Receive Date: 20071105
  Receipt Date: 20070919
  Transmission Date: 20080405
  Serious: Yes (Other)
  Sender: FDA-Public Use
  Company Number: PHEH2007US12488

PATIENT
  Sex: Male

DRUGS (1)
  1. EXELON [Suspect]
     Dosage: TRANSDERMAL
     Route: 062

REACTIONS (1)
  - HAEMOGLOBIN DECREASED [None]
